FAERS Safety Report 20208425 (Version 1)
Quarter: 2021Q4

REPORT INFORMATION
  Report Type: Spontaneous
  Country: US (occurrence: US)
  Receive Date: 20211220
  Receipt Date: 20211220
  Transmission Date: 20220303
  Serious: Yes (Hospitalization)
  Sender: FDA-Public Use
  Company Number: US-VIWITPHARMA-2021VWTLIT00044

PATIENT
  Age: 55 Year
  Sex: Female

DRUGS (1)
  1. TOPIRAMATE [Suspect]
     Active Substance: TOPIRAMATE
     Indication: Seizure
     Route: 065

REACTIONS (7)
  - Osmotic demyelination syndrome [Recovering/Resolving]
  - Encephalopathy [Recovering/Resolving]
  - Asthenia [Recovering/Resolving]
  - Hypokalaemia [Recovering/Resolving]
  - Renal tubular acidosis [Recovering/Resolving]
  - Demyelination [Recovering/Resolving]
  - Hypernatraemia [Recovering/Resolving]
